FAERS Safety Report 9607378 (Version 1)
Quarter: 2013Q4

REPORT INFORMATION
  Report Type: Spontaneous
  Country: US (occurrence: None)
  Receive Date: 20131004
  Receipt Date: 20131004
  Transmission Date: 20140711
  Serious: Yes (Hospitalization, Other)
  Sender: FDA-Public Use
  Company Number: ACO_38738_2013

PATIENT
  Age: 48 Year
  Sex: Male

DRUGS (1)
  1. AMPYRA [Suspect]
     Indication: GAIT DISTURBANCE
     Dates: start: 2011, end: 2012

REACTIONS (8)
  - Intestinal perforation [None]
  - Gastrointestinal stoma complication [None]
  - Pyrexia [None]
  - Malaise [None]
  - Staphylococcal infection [None]
  - Abdominal adhesions [None]
  - Skin fissures [None]
  - Multiple sclerosis relapse [None]
